FAERS Safety Report 6555693-X (Version None)
Quarter: 2010Q1

REPORT INFORMATION
  Report Type: 
  Country: None (occurrence: None)
  Receive Date: 20100128
  Receipt Date: 20100120
  Transmission Date: 20100710
  Serious: Yes (Hospitalization)
  Sender: FDA-Public Use
  Company Number: PHHY2009JP24096

PATIENT
  Sex: Female
  Weight: 49 kg

DRUGS (8)
  1. PARLODEL [Suspect]
     Indication: PARKINSON'S DISEASE
     Dosage: 2.5 MG DAILY
     Route: 048
     Dates: start: 20080221, end: 20090126
  2. MADOPAR [Concomitant]
     Dosage: UNK
     Route: 048
     Dates: start: 20080327, end: 20090126
  3. SYMMETREL [Concomitant]
     Dosage: 150 MG
     Route: 048
     Dates: start: 20070122, end: 20090126
  4. ARTANE [Concomitant]
     Dosage: 6 MG
     Route: 048
     Dates: start: 20070122, end: 20090126
  5. SELENICA-R [Concomitant]
     Dosage: 200 MG
     Route: 048
     Dates: start: 20070122, end: 20090126
  6. RIVOTRIL [Concomitant]
     Dosage: 0.3 G
     Route: 048
     Dates: start: 20080221, end: 20090126
  7. ZYPREXA [Concomitant]
     Dosage: 1 MG
     Route: 048
     Dates: start: 20080911, end: 20090126
  8. SEROQUEL [Concomitant]
     Dosage: 25 MG
     Route: 048
     Dates: start: 20071213, end: 20090126

REACTIONS (6)
  - COUGH [None]
  - DYSPNOEA [None]
  - HYPOXIA [None]
  - INTERSTITIAL LUNG DISEASE [None]
  - LYMPHOCYTE STIMULATION TEST [None]
  - PO2 DECREASED [None]
